FAERS Safety Report 5662077-5 (Version None)
Quarter: 2008Q1

REPORT INFORMATION
  Report Type: 
  Country: None (occurrence: None)
  Receive Date: 20080212
  Receipt Date: 20071023
  Transmission Date: 20080703
  Serious: No
  Sender: FDA-Public Use
  Company Number: WAES 0710USA04679

PATIENT

DRUGS (1)
  1. ZOLINZA [Suspect]
     Indication: MYCOSIS FUNGOIDES
     Dosage: 400 MG/DAILY/PO
     Route: 048
     Dates: start: 20070801, end: 20071009

REACTIONS (1)
  - LABORATORY TEST ABNORMAL [None]
